FAERS Safety Report 19352203 (Version 1)
Quarter: 2021Q2

REPORT INFORMATION
  Report Type: Spontaneous
  Country: US (occurrence: US)
  Receive Date: 20210601
  Receipt Date: 20210601
  Transmission Date: 20210717
  Serious: Yes (Other)
  Sender: FDA-Public Use
  Company Number: US-PFIZER INC-2021581205

PATIENT
  Age: 59 Year
  Sex: Female
  Weight: 74.38 kg

DRUGS (13)
  1. HYDROCODONE/ACETAMINOPHEN [Concomitant]
     Active Substance: ACETAMINOPHEN\HYDROCODONE
     Dosage: UNK
  2. IBRANCE [Suspect]
     Active Substance: PALBOCICLIB
     Indication: LOBULAR BREAST CARCINOMA IN SITU
     Dosage: 75 MG, CYCLIC (DAILY FOR 21 DAYS AND 1 WEEK OFF)
     Route: 048
     Dates: start: 201907
  3. CALCIUM + D3 [CALCIUM CARBONATE;COLECALCIFEROL] [Concomitant]
     Dosage: UNK
  4. VITAMIN C [Concomitant]
     Active Substance: ASCORBIC ACID
     Dosage: UNK
  5. CLARITIN [Concomitant]
     Active Substance: LORATADINE
     Dosage: UNK
  6. LETROZOLE. [Concomitant]
     Active Substance: LETROZOLE
     Dosage: UNK
  7. MULTIVITAMIN FOR WOMEN [Concomitant]
     Active Substance: MINERALS\VITAMINS
     Dosage: UNK
  8. ZOMETA [Concomitant]
     Active Substance: ZOLEDRONIC ACID
     Dosage: UNK
  9. IBRANCE [Suspect]
     Active Substance: PALBOCICLIB
     Dosage: UNK,  CYCLIC (DAILY FOR 14 DAYS AND 2 WEEKS OFF)
     Route: 048
  10. TUMS [Concomitant]
     Active Substance: CALCIUM CARBONATE
     Dosage: UNK
  11. TRAMADOL HCL [Concomitant]
     Active Substance: TRAMADOL HYDROCHLORIDE
     Dosage: UNK
  12. HEARTBURN RELIEF [CIMETIDINE] [Concomitant]
     Dosage: UNK
  13. XANAX [Concomitant]
     Active Substance: ALPRAZOLAM
     Dosage: UNK

REACTIONS (3)
  - Platelet count decreased [Unknown]
  - Spinal compression fracture [Unknown]
  - Neutropenia [Unknown]
